FAERS Safety Report 19035128 (Version 1)
Quarter: 2021Q1

REPORT INFORMATION
  Report Type: Other
  Country: US (occurrence: US)
  Receive Date: 20210320
  Receipt Date: 20210320
  Transmission Date: 20210420
  Serious: Yes (Hospitalization)
  Sender: FDA-Public Use
  Company Number: US-ACORDA-ACO_167392_2020

PATIENT
  Sex: Male

DRUGS (2)
  1. INBRIJA [Suspect]
     Active Substance: LEVODOPA
     Indication: PARKINSON^S DISEASE
     Dosage: 84 MILLIGRAM, PRN, NOT TO EXCEED 5 DOSES A DAY
     Dates: start: 201909
  2. INBRIJA [Suspect]
     Active Substance: LEVODOPA
     Indication: ON AND OFF PHENOMENON
     Dosage: 84 MILLIGRAM, PRN

REACTIONS (8)
  - Tension [Unknown]
  - Musculoskeletal stiffness [Unknown]
  - Therapy cessation [Unknown]
  - Dyskinesia [Unknown]
  - Adverse event [Unknown]
  - Freezing phenomenon [Unknown]
  - Muscle spasticity [Unknown]
  - Choking [Unknown]
